FAERS Safety Report 21078636 (Version 1)
Quarter: 2022Q3

REPORT INFORMATION
  Report Type: Spontaneous
  Country: US (occurrence: US)
  Receive Date: 20220713
  Receipt Date: 20220713
  Transmission Date: 20221027
  Serious: Yes (Other)
  Sender: FDA-Public Use
  Company Number: US-SA-SAC20220711002049

PATIENT
  Age: 42 Year
  Sex: Female

DRUGS (1)
  1. ZANTAC [Suspect]
     Active Substance: RANITIDINE HYDROCHLORIDE
     Indication: Product used for unknown indication
     Dosage: OTHER, FREQUENCY: OTHER
     Dates: start: 200501, end: 201001

REACTIONS (2)
  - Thyroid cancer stage IV [Unknown]
  - Metastatic lymphoma [Unknown]

NARRATIVE: CASE EVENT DATE: 20100101
